FAERS Safety Report 5470867-7 (Version None)
Quarter: 2007Q3

REPORT INFORMATION
  Report Type: 
  Country: None (occurrence: None)
  Receive Date: 20070925
  Receipt Date: 20070912
  Transmission Date: 20080115
  Serious: Yes (Hospitalization, Other)
  Sender: FDA-Public Use
  Company Number: TPG2007A00617

PATIENT
  Age: 75 Year
  Sex: Female

DRUGS (6)
  1. ACTOS [Suspect]
     Indication: DIABETES MELLITUS
     Dosage: 45 MG (45 MG,1 IN 1 D)
     Route: 048
     Dates: start: 20070601, end: 20070801
  2. L-THYROXINE (LEVOTHYROXINE) [Concomitant]
  3. TOREM (TORASEMIDE) [Concomitant]
  4. METOPROLOL TARTRATE [Concomitant]
  5. LISINOPRIL [Concomitant]
  6. METFORMIN HCL [Concomitant]

REACTIONS (2)
  - BILE DUCT OBSTRUCTION [None]
  - BILE DUCT STONE [None]
